FAERS Safety Report 6453017-X (Version None)
Quarter: 2009Q4

REPORT INFORMATION
  Report Type: 
  Country: None (occurrence: None)
  Receive Date: 20091124
  Receipt Date: 20090901
  Transmission Date: 20100525
  Serious: No
  Sender: FDA-Public Use
  Company Number: US-ABBOTT-09P-163-0590550-00

PATIENT
  Sex: Female
  Weight: 58.112 kg

DRUGS (3)
  1. TRICOR [Suspect]
     Indication: BLOOD TRIGLYCERIDES INCREASED
     Dates: start: 20090706, end: 20090801
  2. LO-TROL [Concomitant]
     Indication: DRUG USE FOR UNKNOWN INDICATION
  3. ESTRODIAL [Concomitant]
     Indication: DRUG USE FOR UNKNOWN INDICATION

REACTIONS (4)
  - ABDOMINAL PAIN UPPER [None]
  - HEADACHE [None]
  - HEPATIC ENZYME INCREASED [None]
  - NAUSEA [None]
